FAERS Safety Report 6305638-2 (Version None)
Quarter: 2009Q3

REPORT INFORMATION
  Report Type: 
  Country: None (occurrence: None)
  Receive Date: 20090806
  Receipt Date: 20090715
  Transmission Date: 20100115
  Serious: Yes (Hospitalization, Other)
  Sender: FDA-Public Use
  Company Number: 002312

PATIENT
  Age: 41 Year
  Sex: Male

DRUGS (2)
  1. PEGATANIB SODIUM(PEGAPTANIB SODIUM) SOLUTION FOR INJ [Suspect]
     Dates: start: 20081101
  2. INHALED HUMAN INSULIN [Concomitant]

REACTIONS (1)
  - TRANSIENT ISCHAEMIC ATTACK [None]
